FAERS Safety Report 23687101 (Version 3)
Quarter: 2024Q3

REPORT INFORMATION
  Report Type: Spontaneous
  Country: MX (occurrence: MX)
  Receive Date: 20240329
  Receipt Date: 20240802
  Transmission Date: 20241017
  Serious: Yes (Hospitalization, Other)
  Sender: LUNDBECK
  Company Number: MX-LUNDBECK-DKLU3073898

PATIENT

DRUGS (12)
  1. CLOBAZAM [Suspect]
     Active Substance: CLOBAZAM
     Indication: Multiple sclerosis
     Dosage: 10 003
     Route: 048
     Dates: start: 20110308
  2. CLOBAZAM [Suspect]
     Active Substance: CLOBAZAM
     Indication: Epilepsy
  3. TRILEPTAL [Suspect]
     Active Substance: OXCARBAZEPINE
     Indication: Epilepsy
     Dosage: 1 032
     Route: 048
     Dates: start: 2011, end: 2016
  4. TRILEPTAL [Suspect]
     Active Substance: OXCARBAZEPINE
     Dosage: 1 032
     Route: 048
     Dates: start: 2014, end: 2016
  5. TRILEPTAL [Suspect]
     Active Substance: OXCARBAZEPINE
     Dosage: 1 032
     Route: 048
     Dates: start: 2016, end: 2020
  6. KEPPRA [Concomitant]
     Active Substance: LEVETIRACETAM
     Indication: Epilepsy
     Dosage: 1 032
     Route: 048
     Dates: start: 2013, end: 2021
  7. PISARPEK [Concomitant]
     Indication: Epilepsy
     Dosage: 1 032
     Route: 048
     Dates: start: 2021, end: 202311
  8. SINFONIL [Concomitant]
     Indication: Epilepsy
     Dosage: 1 032
     Route: 048
  9. OXCARBAZEPINE [Concomitant]
     Active Substance: OXCARBAZEPINE
     Indication: Product used for unknown indication
     Dosage: 3 032
     Route: 048
     Dates: start: 2011, end: 2016
  10. LEVETIRACETAM [Concomitant]
     Active Substance: LEVETIRACETAM
     Indication: Product used for unknown indication
     Dosage: 1 TABLET IN THE MORNING 1 TABLET IN THE AFTERNOON 2 TABLETS AT NIGHT
     Route: 048
     Dates: start: 202311
  11. MELATONIN [Concomitant]
     Active Substance: MELATONIN
     Indication: Product used for unknown indication
     Dosage: 1 032
     Route: 048
     Dates: start: 202311
  12. CANNABIDIOL [Concomitant]
     Active Substance: CANNABIDIOL
     Indication: Product used for unknown indication
     Dosage: 6000 3 DROPS PER DAY
     Route: 048
     Dates: start: 202311

REACTIONS (5)
  - Seizure [Recovered/Resolved]
  - Seizure [Recovered/Resolved]
  - Hippocampal sclerosis [Unknown]
  - Seizure [Unknown]
  - Seizure [Recovered/Resolved]

NARRATIVE: CASE EVENT DATE: 20240129
